FAERS Safety Report 5025441-3 (Version None)
Quarter: 2006Q2

REPORT INFORMATION
  Report Type: 
  Country: None (occurrence: None)
  Receive Date: 20060608
  Receipt Date: 20060526
  Transmission Date: 20061013
  Serious: Yes (Hospitalization)
  Sender: FDA-Public Use
  Company Number: 2006068251

PATIENT
  Age: 62 Year
  Sex: Male
  Weight: 75.4 kg

DRUGS (11)
  1. SUTENT [Suspect]
     Indication: NON-SMALL CELL LUNG CANCER
     Dosage: SEE IMAGE
     Route: 048
     Dates: start: 20051001, end: 20051028
  2. SUTENT [Suspect]
     Indication: NON-SMALL CELL LUNG CANCER
     Dosage: SEE IMAGE
     Route: 048
     Dates: start: 20051128, end: 20051212
  3. SUTENT [Suspect]
     Indication: NON-SMALL CELL LUNG CANCER
     Dosage: SEE IMAGE
     Route: 048
     Dates: start: 20060109, end: 20060208
  4. SUTENT [Suspect]
     Indication: NON-SMALL CELL LUNG CANCER
     Dosage: SEE IMAGE
     Route: 048
     Dates: start: 20060228, end: 20060327
  5. SUTENT [Suspect]
     Indication: NON-SMALL CELL LUNG CANCER
     Dosage: SEE IMAGE
     Route: 048
     Dates: start: 20060420, end: 20060430
  6. GLIPIZIDE [Concomitant]
  7. ALBUTEROL [Concomitant]
  8. OXYCODONE (OXYCODONE) [Concomitant]
  9. ALLEGRA [Concomitant]
  10. METOPROLOL SUCCINATE [Concomitant]
  11. LESCOL [Concomitant]

REACTIONS (2)
  - ADVERSE EVENT [None]
  - PLEURAL EFFUSION [None]
